FAERS Safety Report 6665206-X (Version None)
Quarter: 2010Q2

REPORT INFORMATION
  Report Type: 
  Country: None (occurrence: None)
  Receive Date: 20100402
  Receipt Date: 20100326
  Transmission Date: 20101027
  Serious: Yes (Other)
  Sender: FDA-Public Use
  Company Number: US-B.I. PHARMACEUTICALS,INC./RIDGEFIELD-2010-BP-03534BP

PATIENT
  Sex: Female

DRUGS (4)
  1. MOBIC [Suspect]
     Indication: ARTHRITIS
     Route: 048
  2. AGGRENOX [Suspect]
     Route: 048
  3. PLAVIX [Suspect]
     Dosage: 75 MG
     Route: 048
  4. PLAVIX [Suspect]
     Dosage: 75 MG
     Route: 048
     Dates: end: 20040101

REACTIONS (2)
  - CEREBROVASCULAR ACCIDENT [None]
  - MYOCARDIAL INFARCTION [None]
